FAERS Safety Report 4856138-8 (Version None)
Quarter: 2005Q4

REPORT INFORMATION
  Report Type: 
  Country: None (occurrence: None)
  Receive Date: 20051216
  Receipt Date: 20051207
  Transmission Date: 20060501
  Serious: Yes (Hospitalization, Disabling, Other)
  Sender: FDA-Public Use
  Company Number: US-MERCK-0512USA01452

PATIENT
  Age: 69 Year
  Sex: Male
  Weight: 89 kg

DRUGS (9)
  1. VIOXX [Suspect]
     Indication: BACK PAIN
     Route: 048
     Dates: start: 20000403, end: 20041026
  2. VIOXX [Suspect]
     Indication: ARTHRALGIA
     Route: 048
     Dates: start: 20000403, end: 20041026
  3. HYDROCHLOROTHIAZIDE AND LISINOPRIL [Concomitant]
     Route: 065
  4. INSULIN [Concomitant]
     Route: 065
  5. GLUCOVANCE [Concomitant]
     Route: 065
  6. AVANDIA [Concomitant]
     Route: 065
  7. ASPIRIN [Concomitant]
     Route: 065
  8. USANA PROCOSA II [Concomitant]
     Route: 065
  9. DARVON [Concomitant]
     Route: 065

REACTIONS (12)
  - BACK INJURY [None]
  - CARDIAC DISORDER [None]
  - CARDIAC MURMUR [None]
  - CATARACT [None]
  - CHEST DISCOMFORT [None]
  - CHEST PAIN [None]
  - COLON CANCER [None]
  - CORONARY ARTERY DISEASE [None]
  - DYSPNOEA [None]
  - MYOCARDIAL INFARCTION [None]
  - MYOCARDIAL ISCHAEMIA [None]
  - RECTAL HAEMORRHAGE [None]
